FAERS Safety Report 5482642-8 (Version None)
Quarter: 2007Q4

REPORT INFORMATION
  Report Type: 
  Country: None (occurrence: None)
  Receive Date: 20071011
  Receipt Date: 20070907
  Transmission Date: 20080405
  Serious: No
  Sender: FDA-Public Use
  Company Number: A0679710A

PATIENT
  Age: 49 Year
  Sex: Female

DRUGS (3)
  1. TYKERB [Suspect]
     Indication: BREAST CANCER
     Dosage: 5TAB PER DAY
     Route: 048
     Dates: start: 20070701
  2. BLOOD PRESSURE MEDICATION [Concomitant]
  3. PERCOCET [Concomitant]

REACTIONS (3)
  - PIGMENTATION DISORDER [None]
  - SKIN DISCOLOURATION [None]
  - SKIN EXFOLIATION [None]
